FAERS Safety Report 5473625-2 (Version None)
Quarter: 2007Q4

REPORT INFORMATION
  Report Type: 
  Country: None (occurrence: None)
  Receive Date: 20071001
  Receipt Date: 20060403
  Transmission Date: 20080405
  Serious: Yes (Disabling, Other)
  Sender: FDA-Public Use
  Company Number: US-PFIZER INC-2006051829

PATIENT
  Sex: Female
  Weight: 59 kg

DRUGS (5)
  1. CELEBREX [Suspect]
     Indication: PLANTAR FASCIITIS
     Route: 048
  2. DETROL LA [Suspect]
     Indication: HYPERTONIC BLADDER
     Route: 065
  3. ANALGESICS [Concomitant]
     Route: 065
  4. PAXIL [Concomitant]
     Route: 065
  5. CITRUCEL [Concomitant]
     Route: 065

REACTIONS (6)
  - CONSTIPATION [None]
  - FEELING HOT [None]
  - FLUSHING [None]
  - HAEMOPHILIA [None]
  - HOT FLUSH [None]
  - PLANTAR FASCIITIS [None]
